FAERS Safety Report 9099186 (Version 1)
Quarter: 2013Q1

REPORT INFORMATION
  Report Type: Spontaneous
  Country: US (occurrence: US)
  Receive Date: 20130214
  Receipt Date: 20130214
  Transmission Date: 20140127
  Serious: No
  Sender: FDA-Public Use
  Company Number: US-COVIDIEN/TYCO HEALTHCARE/MALLINCKRODT-T201204289

PATIENT
  Sex: Female

DRUGS (3)
  1. FENTANYL TRANSDERMAL SYSTEM [Suspect]
     Indication: PAIN
     Dosage: 25 MCG/HR Q 3 DAYS
     Route: 062
     Dates: start: 20121116, end: 20121124
  2. FENTANYL [Concomitant]
     Indication: PAIN
     Dosage: 12 MCG/HR Q 3 DAYS
     Route: 062
     Dates: end: 201210
  3. ASPIRIN [Concomitant]
     Indication: PROPHYLAXIS
     Dosage: APPROX 325 MG QD
     Route: 048

REACTIONS (4)
  - Application site bruise [Recovering/Resolving]
  - Application site burn [Recovered/Resolved]
  - Drug effect increased [Unknown]
  - Drug ineffective [Unknown]
